FAERS Safety Report 18961481 (Version 1)
Quarter: 2021Q1

REPORT INFORMATION
  Report Type: Spontaneous
  Country: US (occurrence: US)
  Receive Date: 20210302
  Receipt Date: 20210302
  Transmission Date: 20210420
  Serious: Yes (Other)
  Sender: FDA-Public Use
  Company Number: US-ASTRAZENECA-2021A087247

PATIENT
  Sex: Female

DRUGS (1)
  1. BRILINTA [Suspect]
     Active Substance: TICAGRELOR
     Dosage: UNKNOWN
     Route: 048

REACTIONS (8)
  - Diaphragmatic disorder [Unknown]
  - Drug ineffective [Unknown]
  - Dyspnoea [Unknown]
  - Fatigue [Unknown]
  - Insomnia [Unknown]
  - Somnolence [Unknown]
  - Suicidal ideation [Unknown]
  - Panic attack [Unknown]
